FAERS Safety Report 9251131 (Version 1)
Quarter: 2013Q1

REPORT INFORMATION
  Report Type: Spontaneous
  Country: US (occurrence: None)
  Receive Date: 20130305
  Receipt Date: 20130305
  Transmission Date: 20140127
  Serious: Yes (Life-Threatening, Hospitalization)
  Sender: FDA-Public Use
  Company Number: 163-21880-12042206

PATIENT
  Age: 68 Year
  Sex: Female

DRUGS (28)
  1. REVLIMID [Suspect]
     Indication: PLASMA CELL MYELOMA
     Dosage: 1 IN 1 D
     Route: 048
     Dates: start: 20100330
  2. DEXAMETHASONE (DEXAMETHASONE) [Concomitant]
  3. VAGIFEM (ESTRADIOL) [Concomitant]
  4. AGGRENOX (ASASANTIN) [Concomitant]
  5. METRONIDAZOLE (METRONIDAZOLE) [Concomitant]
  6. DIPHENOXYLATE/ ATROPINE (LOMOTIL) [Concomitant]
  7. OMEPRAZOLE (OMEPRAZOLE) [Concomitant]
  8. LEVAQUIN (LEVOFLOXACIN) [Concomitant]
  9. PROAIR INHALER (FLUTICASONE PROPIONATE) [Concomitant]
  10. METOPROLOL TARTRATE (METOPROLOL TARTRATE) (TABLETS) (METOPROLOL TARTRATE) [Concomitant]
  11. AZITHROMYCIN (AZITHROMYCIN) [Concomitant]
  12. ZOLPIDEM (ZOLPIDEM) [Concomitant]
  13. ACYCLOVIR (ACICLOVIR) (ACICLOVIR) [Concomitant]
  14. METANX (METANX) [Concomitant]
  15. LEVOTHYROXINE (LEVOTHYROXINE) [Concomitant]
  16. CHERATUSSIN AC (CHERATUSSIN AC) [Concomitant]
  17. ALKERAN (MELPHALAN) [Concomitant]
  18. PANTOPRAZOLE (PANTOPRAZOLE) [Concomitant]
  19. NEUPROGEN (FILGRASTIM) [Concomitant]
  20. VELCADE (BORTEZOMIB) [Concomitant]
  21. LOVENOX (HEPARIN-FRACTION, SODIUM SALT) [Concomitant]
  22. TAMIFLU (OSELTAMIVIR) [Concomitant]
  23. FIBERCON (POLYCARBOPHIL CALCIUM) [Concomitant]
  24. IMODIUM (LOPERAMIDE HYDROCHLORIDE) [Concomitant]
  25. LOMOTIL (LOMOTIL) [Concomitant]
  26. SENNA [Concomitant]
  27. ONDANSETRON (ONDANSETRON) [Concomitant]
  28. DULCOLAX (BISACODYL) [Concomitant]

REACTIONS (1)
  - Cerebrovascular accident [None]
